FAERS Safety Report 6286682-0 (Version None)
Quarter: 2009Q3

REPORT INFORMATION
  Report Type: 
  Country: None (occurrence: None)
  Receive Date: 20090728
  Receipt Date: 20090724
  Transmission Date: 20100115
  Serious: Yes (Death)
  Sender: FDA-Public Use
  Company Number: PHHY2009JP30300

PATIENT
  Sex: Male
  Weight: 60 kg

DRUGS (5)
  1. ICL670A ICL+DISTAB [Suspect]
     Indication: MYELODYSPLASTIC SYNDROME
     Dosage: 625 MG DAILY
     Route: 048
     Dates: start: 20080805, end: 20080915
  2. ICL670A ICL+DISTAB [Suspect]
     Indication: IRON OVERLOAD
  3. GLAKAY [Concomitant]
     Indication: MYELODYSPLASTIC SYNDROME
     Dosage: 45MG UNK
     Route: 048
     Dates: start: 20080304, end: 20080915
  4. ONEALFA [Concomitant]
     Indication: MYELODYSPLASTIC SYNDROME
     Dosage: 0.5 MICRO GRAM  UNK
     Route: 048
     Dates: start: 20080304, end: 20080915
  5. RED BLOOD CELLS [Concomitant]
     Dosage: 2 U, UNK
     Dates: start: 20080812, end: 20080909

REACTIONS (1)
  - PNEUMONIA [None]
